FAERS Safety Report 5250349-8 (Version None)
Quarter: 2007Q1

REPORT INFORMATION
  Report Type: 
  Country: None (occurrence: None)
  Receive Date: 20070228
  Receipt Date: 20060427
  Transmission Date: 20070707
  Serious: Yes (Life-Threatening, Hospitalization, Disabling, Other)
  Sender: FDA-Public Use
  Company Number: US-GLAXOSMITHKLINE-A0599920A

PATIENT
  Age: 20 Year
  Sex: Female

DRUGS (3)
  1. LAMICTAL [Suspect]
     Indication: BIPOLAR DISORDER
     Dosage: 100MG UNKNOWN
     Route: 048
     Dates: start: 20060302, end: 20060324
  2. LEXAPRO [Concomitant]
  3. ORTHO TRI-CYCLEN [Concomitant]

REACTIONS (8)
  - BLISTER [None]
  - ERYTHEMA MULTIFORME [None]
  - PYREXIA [None]
  - RASH [None]
  - RESPIRATION ABNORMAL [None]
  - SKIN EXFOLIATION [None]
  - STEVENS-JOHNSON SYNDROME [None]
  - TOXIC EPIDERMAL NECROLYSIS [None]
